FAERS Safety Report 8774875 (Version 2)
Quarter: 2012Q4

REPORT INFORMATION
  Report Type: 
  Country: US (occurrence: US)
  Receive Date: 20120910
  Receipt Date: 20120914
  Transmission Date: 20130627
  Serious: Yes (Other)
  Sender: FDA-Public Use
  Company Number: US-BAXTER-2012BAX016262

PATIENT
  Sex: Female
  Weight: 50.85 kg

DRUGS (2)
  1. DIANEAL LOW CALCIUM [Suspect]
     Indication: CONTINUOUS CYCLING PERITONEAL DIALYSIS
     Dosage: 6 EXCHANGES OF 1.5 L
     Route: 033
     Dates: start: 20120507
  2. DIANEAL LOW CALCIUM [Suspect]
     Indication: CONTINUOUS CYCLING PERITONEAL DIALYSIS
     Route: 033
     Dates: start: 20120607

REACTIONS (2)
  - Cerebrovascular accident [Recovering/Resolving]
  - Memory impairment [Unknown]
